FAERS Safety Report 9023967 (Version 1)
Quarter: 2013Q1

REPORT INFORMATION
  Report Type: Spontaneous
  Country: US (occurrence: US)
  Receive Date: 20130121
  Receipt Date: 20130121
  Transmission Date: 20140127
  Serious: Yes (Hospitalization)
  Sender: FDA-Public Use
  Company Number: US-SANOFI-AVENTIS-2013SA001454

PATIENT
  Age: 68 Year
  Sex: Female

DRUGS (2)
  1. LANTUS SOLOSTAR [Suspect]
     Dosage: 40AM/30PM
     Route: 058
     Dates: start: 201201
  2. SOLOSTAR [Suspect]
     Dates: start: 201201

REACTIONS (1)
  - Hospitalisation [Unknown]
